FAERS Safety Report 25500838 (Version 2)
Quarter: 2025Q3

REPORT INFORMATION
  Report Type: Report from Study
  Country: JP (occurrence: JP)
  Receive Date: 20250701
  Receipt Date: 20250723
  Transmission Date: 20251021
  Serious: Yes (Hospitalization)
  Sender: EISAI
  Company Number: JP-Eisai-EC-2025-191095

PATIENT
  Age: 80 Year
  Sex: Female
  Weight: 48 kg

DRUGS (3)
  1. LEQEMBI [Suspect]
     Active Substance: LECANEMAB-IRMB
     Indication: Cognitive disorder
     Dates: start: 20240821, end: 20240904
  2. LEQEMBI [Suspect]
     Active Substance: LECANEMAB-IRMB
     Dates: start: 20241002, end: 20241002
  3. LEQEMBI [Suspect]
     Active Substance: LECANEMAB-IRMB
     Dates: start: 20241016

REACTIONS (1)
  - Dizziness [Recovered/Resolved]
